FAERS Safety Report 11803816 (Version 1)
Quarter: 2015Q4

REPORT INFORMATION
  Report Type: Report from Study
  Country: CN (occurrence: CN)
  Receive Date: 20151204
  Receipt Date: 20151204
  Transmission Date: 20160305
  Serious: Yes (Other)
  Sender: FDA-Public Use
  Company Number: CN-BAXALTA-2015BLT002972

PATIENT
  Weight: 75 kg

DRUGS (2)
  1. ADVATE [Suspect]
     Active Substance: ANTIHEMOPHILIC FACTOR, HUMAN RECOMBINANT
     Indication: HAEMOPHILIA
  2. ADVATE [Suspect]
     Active Substance: ANTIHEMOPHILIC FACTOR, HUMAN RECOMBINANT
     Indication: PROPHYLAXIS
     Dosage: 1500 IU, 2X A WEEK
     Route: 065

REACTIONS (2)
  - Mouth haemorrhage [Recovered/Resolved]
  - Post procedural haemorrhage [Recovered/Resolved]

NARRATIVE: CASE EVENT DATE: 201511
